FAERS Safety Report 17105404 (Version 1)
Quarter: 2019Q4

REPORT INFORMATION
  Report Type: Report from Study
  Country: IT (occurrence: IT)
  Receive Date: 20191203
  Receipt Date: 20191203
  Transmission Date: 20200122
  Serious: Yes (Hospitalization)
  Sender: FDA-Public Use
  Company Number: IT-TEVA-2019-IT-1144985

PATIENT
  Age: 50 Year
  Sex: Male

DRUGS (11)
  1. TRIMETON 10 MG/1 ML SOLUZIONE INIETTABILE [Concomitant]
  2. VINCRISTINA EG 1 MG/ML SOLUZIONE INIETTABILE PER USO ENDOVENOSO [Concomitant]
     Active Substance: VINCRISTINE SULFATE
  3. DOXORUBICINA TEVA 2 MG/ML CONCENTRATO PER SOLUZIONE PER INFUSIONE [Concomitant]
     Active Substance: DOXORUBICIN
  4. ZYLORIC 300 MG COMPRESSE [Concomitant]
     Active Substance: ALLOPURINOL
  5. LASIX [Concomitant]
     Active Substance: FUROSEMIDE
  6. ZOFRAN 8 MG/4 ML SOLUZIONE INIETTABILE [Concomitant]
  7. URBASON SOLUBILE [Concomitant]
     Active Substance: METHYLPREDNISOLONE SODIUM SUCCINATE
  8. FLEBOCORTID RICHTER [Concomitant]
  9. TARGOSID 200 MG POLVERE E SOLVENTE PER SOLUZIONE INIETTABILE/INFUSIONE [Concomitant]
  10. MEROPENEM SANDOZ [Concomitant]
     Active Substance: MEROPENEM
  11. ETOPOSIDE TEVA 20 MG/ML, CONCENTRATO PER SOLUZIONE PER INFUSIONE [Suspect]
     Active Substance: ETOPOSIDE
     Indication: B-CELL LYMPHOMA
     Dosage: 189 MILLIGRAM
     Route: 042
     Dates: start: 20191023, end: 20191023

REACTIONS (1)
  - Infusion related reaction [Recovered/Resolved]

NARRATIVE: CASE EVENT DATE: 20191023
